FAERS Safety Report 4285145-1 (Version None)
Quarter: 2004Q1

REPORT INFORMATION
  Report Type: 
  Country: None (occurrence: None)
  Receive Date: 20040204
  Receipt Date: 20030728
  Transmission Date: 20041129
  Serious: Yes (Hospitalization)
  Sender: FDA-Public Use
  Company Number: US-BRISTOL-MYERS SQUIBB COMPANY-12343075

PATIENT
  Age: 87 Year
  Sex: Male
  Weight: 82 kg

DRUGS (9)
  1. PRAVACHOL [Suspect]
     Dosage: STOPPED FOR 2 WEEKS JAN-2003 AND RE-INTRODUCED
     Dates: start: 19960524
  2. ALLOPURINOL [Concomitant]
     Dosage: DOSAGE FORM = TABLET
  3. ASPIRIN [Concomitant]
  4. VASOTEC [Concomitant]
  5. MULTI-VITAMIN [Concomitant]
  6. PRILOSEC [Concomitant]
  7. VITAMIN E [Concomitant]
  8. AMBIEN [Concomitant]
  9. GLUCOSAMINE+CHONDROITIN+MSM [Concomitant]

REACTIONS (11)
  - ARTHRALGIA [None]
  - BLOOD POTASSIUM INCREASED [None]
  - COLONIC POLYP [None]
  - DIFFICULTY IN WALKING [None]
  - ERECTILE DYSFUNCTION [None]
  - GASTROOESOPHAGEAL REFLUX DISEASE [None]
  - INSOMNIA [None]
  - INTERVERTEBRAL DISC DEGENERATION [None]
  - MYALGIA [None]
  - MYOCARDIAL INFARCTION [None]
  - PAIN [None]
